FAERS Safety Report 22091097 (Version 1)
Quarter: 2023Q1

REPORT INFORMATION
  Report Type: Report from Study
  Country: US (occurrence: US)
  Receive Date: 20230314
  Receipt Date: 20230314
  Transmission Date: 20230417
  Serious: No
  Sender: FDA-Public Use
  Company Number: US-002147023-NVSC2023US055651

PATIENT
  Sex: Female

DRUGS (5)
  1. KESIMPTA [Suspect]
     Active Substance: OFATUMUMAB
     Indication: Multiple sclerosis
     Dosage: 1 DOSAGE FORM, QW (INJECT 1 PEN M(20MG) SUBCUTANEOUSLY AT WEEK 0, WEEK 1 AND WEEK 2 AS DIRECTED)
     Route: 058
  2. MAGNESIUM [Concomitant]
     Active Substance: MAGNESIUM
     Indication: Product used for unknown indication
     Route: 065
  3. POTASSIUM [Concomitant]
     Active Substance: POTASSIUM
     Indication: Product used for unknown indication
     Route: 065
  4. ZINCATE [Concomitant]
     Indication: Product used for unknown indication
     Route: 065
  5. IMMUNOTIX [Concomitant]
     Indication: Product used for unknown indication
     Dosage: 500
     Route: 065

REACTIONS (2)
  - Adverse drug reaction [Unknown]
  - Drug effect less than expected [Unknown]
